FAERS Safety Report 23863248 (Version 7)
Quarter: 2024Q4

REPORT INFORMATION
  Report Type: Spontaneous
  Country: US (occurrence: US)
  Receive Date: 20240516
  Receipt Date: 20241123
  Transmission Date: 20250114
  Serious: No
  Sender: BRISTOL-MYERS SQUIBB COMPANY
  Company Number: US-BRISTOL-MYERS SQUIBB COMPANY-2024-075542

PATIENT
  Age: 86 Year
  Sex: Female
  Weight: 58.06 kg

DRUGS (3)
  1. POMALYST [Suspect]
     Active Substance: POMALIDOMIDE
     Indication: Plasma cell myeloma
     Route: 048
  2. POMALYST [Suspect]
     Active Substance: POMALIDOMIDE
  3. METFORMIN [Suspect]
     Active Substance: METFORMIN HYDROCHLORIDE
     Indication: Product used for unknown indication

REACTIONS (6)
  - Respiratory tract infection [Recovered/Resolved]
  - Dizziness [Recovering/Resolving]
  - Off label use [Unknown]
  - Peripheral swelling [Not Recovered/Not Resolved]
  - Malaise [Unknown]
  - Fatigue [Not Recovered/Not Resolved]
